FAERS Safety Report 5292298-5 (Version None)
Quarter: 2007Q2

REPORT INFORMATION
  Report Type: 
  Country: None (occurrence: None)
  Receive Date: 20070410
  Receipt Date: 20070410
  Transmission Date: 20071010
  Serious: Yes (Hospitalization)
  Sender: FDA-Public Use
  Company Number: AT-ROCHE-242167

PATIENT
  Age: 61 Year
  Sex: Female
  Weight: 50 kg

DRUGS (4)
  1. ROFERON-A [Suspect]
     Indication: MALIGNANT MELANOMA
     Route: 058
     Dates: start: 20000317, end: 20000714
  2. PLACEBO [Suspect]
     Indication: MALIGNANT MELANOMA
     Route: 048
     Dates: start: 20000317, end: 20000714
  3. UROSIN [Concomitant]
     Route: 048
     Dates: start: 19900615
  4. TENORETIC 100 [Concomitant]
     Route: 048
     Dates: start: 19900615

REACTIONS (1)
  - METASTASES TO LYMPH NODES [None]
